FAERS Safety Report 7861158-5 (Version None)
Quarter: 2011Q4

REPORT INFORMATION
  Report Type: 
  Country: None (occurrence: None)
  Receive Date: 20111027
  Receipt Date: 20111019
  Transmission Date: 20120403
  Serious: Yes (Other)
  Sender: FDA-Public Use
  Company Number: CHPA2011US14753

PATIENT
  Age: 65 Year
  Sex: Male

DRUGS (2)
  1. VOLTAREN [Suspect]
     Indication: ARTHRALGIA
     Dosage: UNK, UNK
     Route: 061
  2. VOLTAREN [Suspect]
     Indication: MUSCULOSKELETAL PAIN

REACTIONS (6)
  - APPLICATION SITE PAIN [None]
  - CONDITION AGGRAVATED [None]
  - DRUG ADMINISTERED AT INAPPROPRIATE SITE [None]
  - BLISTER [None]
  - SCAR [None]
  - OFF LABEL USE [None]
